FAERS Safety Report 6725229-9 (Version None)
Quarter: 2010Q2

REPORT INFORMATION
  Report Type: 
  Country: None (occurrence: None)
  Receive Date: 20100514
  Receipt Date: 20100430
  Transmission Date: 20101027
  Serious: Yes (Hospitalization)
  Sender: FDA-Public Use
  Company Number: DE-RANBAXY-2010RR-33679

PATIENT
  Age: 13 Month
  Sex: Male
  Weight: 9.4 kg

DRUGS (4)
  1. AMOXICILLIN AND CLAVULANATE POTASSIUM [Suspect]
     Indication: PYREXIA
     Dosage: 560 MG, QD
     Dates: start: 20100407, end: 20100408
  2. PARACETAMOL [Concomitant]
     Indication: PYREXIA
     Dosage: 375 MG, QD
     Dates: start: 20100407, end: 20100408
  3. IBUPROFEN [Concomitant]
     Indication: PYREXIA
     Dosage: 100 MG, QD
     Dates: start: 20100406, end: 20100408
  4. OFLOXACIN [Concomitant]
     Dosage: UNK
     Dates: start: 20100329, end: 20100403

REACTIONS (2)
  - ACUTE HEPATIC FAILURE [None]
  - RENAL FAILURE ACUTE [None]
